FAERS Safety Report 4838156-9 (Version None)
Quarter: 2005Q4

REPORT INFORMATION
  Report Type: 
  Country: None (occurrence: None)
  Receive Date: 20051121
  Receipt Date: 20051108
  Transmission Date: 20060501
  Serious: Yes (Death)
  Sender: FDA-Public Use
  Company Number: 2005BH002872

PATIENT
  Sex: Male

DRUGS (2)
  1. HEMOPHIL (FACTOR VIII (ANTIHAEMOPHILIC FACTOR)) [Suspect]
     Indication: HAEMOPHILIA
  2. PROPLEX T [Suspect]
     Indication: HAEMOPHILIA

REACTIONS (1)
  - HIV INFECTION [None]
